FAERS Safety Report 5220548-X (Version None)
Quarter: 2007Q1

REPORT INFORMATION
  Report Type: 
  Country: None (occurrence: None)
  Receive Date: 20070126
  Receipt Date: 20070119
  Transmission Date: 20070707
  Serious: Yes (Death, Life-Threatening, Hospitalization)
  Sender: FDA-Public Use
  Company Number: IE-SOLVAY-00207000153

PATIENT
  Age: 18765 Day
  Sex: Male
  Weight: 73 kg

DRUGS (1)
  1. PERINDOPRIL ERBUMINE [Suspect]
     Indication: BLOOD PRESSURE INCREASED
     Dosage: DAILY DOSE:  UNKNOWN
     Route: 048
     Dates: start: 20060519, end: 20060801

REACTIONS (1)
  - PANCYTOPENIA [None]
